FAERS Safety Report 9444371 (Version 1)
Quarter: 2013Q3

REPORT INFORMATION
  Report Type: Spontaneous
  Country: US (occurrence: US)
  Receive Date: 20130807
  Receipt Date: 20130807
  Transmission Date: 20140515
  Serious: Yes (Other)
  Sender: FDA-Public Use
  Company Number: US-AMGEN-USASP2013054095

PATIENT
  Sex: Female

DRUGS (5)
  1. PROLIA [Suspect]
     Indication: PRODUCT USED FOR UNKNOWN INDICATION
     Dosage: 60 MG, Q6MO
     Route: 065
  2. CALCIUM [Concomitant]
     Indication: TETANY
     Route: 042
  3. CALCIUM [Concomitant]
     Indication: HYPOCALCAEMIA
  4. VITAMIN D                          /00107901/ [Concomitant]
     Indication: TETANY
     Route: 042
  5. VITAMIN D                          /00107901/ [Concomitant]
     Indication: HYPOCALCAEMIA

REACTIONS (2)
  - Tetany [Unknown]
  - Hypocalcaemia [Unknown]
